FAERS Safety Report 23638354 (Version 1)
Quarter: 2024Q1

REPORT INFORMATION
  Report Type: Spontaneous
  Country: DE (occurrence: DE)
  Receive Date: 20240315
  Receipt Date: 20240315
  Transmission Date: 20240410
  Serious: Yes (Death)
  Sender: FDA-Public Use
  Company Number: DE-DCGMA-24202720

PATIENT
  Age: 60 Year
  Sex: Male
  Weight: 85 kg

DRUGS (9)
  1. ZONISAMIDE [Suspect]
     Active Substance: ZONISAMIDE
     Indication: Post-traumatic epilepsy
     Dosage: 1-0-1
     Route: 048
  2. RAMIPRIL [Concomitant]
     Active Substance: RAMIPRIL
     Indication: Hypertonia
     Dosage: 1-0-0
     Route: 048
  3. DULOXETINE [Concomitant]
     Active Substance: DULOXETINE
     Indication: Product used for unknown indication
     Dosage: 1-0-0
     Route: 048
  4. TRAMADOL [Concomitant]
     Active Substance: TRAMADOL\TRAMADOL HYDROCHLORIDE
     Indication: Pain
     Dosage: 1-0-1
     Route: 048
  5. METOPROLOL [Concomitant]
     Active Substance: METOPROLOL
     Indication: Atrial fibrillation
     Dosage: 0-0-1
     Route: 048
  6. VALPROATE [Suspect]
     Active Substance: VALPROIC ACID
     Indication: Post-traumatic epilepsy
     Dosage: 1-0-1
     Route: 048
  7. TORSEMIDE [Concomitant]
     Active Substance: TORSEMIDE
     Indication: Cardiac failure
     Dosage: 1-0-0
     Route: 048
  8. ATORVASTATIN [Concomitant]
     Active Substance: ATORVASTATIN
     Indication: Hyperlipidaemia
     Dosage: 0-0-1
     Route: 048
  9. APIXABAN [Concomitant]
     Active Substance: APIXABAN
     Indication: Atrial fibrillation
     Dosage: 1-0-1
     Route: 048

REACTIONS (4)
  - Hyperkalaemia [Fatal]
  - Sudden cardiac death [Fatal]
  - Hyperammonaemia [Fatal]
  - Metabolic acidosis [Fatal]

NARRATIVE: CASE EVENT DATE: 20231231
